FAERS Safety Report 25315481 (Version 2)
Quarter: 2025Q3

REPORT INFORMATION
  Report Type: Report from Study
  Country: CA (occurrence: CA)
  Receive Date: 20250514
  Receipt Date: 20250702
  Transmission Date: 20251020
  Serious: Yes (Hospitalization, Other)
  Sender: TAKEDA
  Company Number: CA-TAKEDA-2025TUS043968

PATIENT
  Sex: Male

DRUGS (13)
  1. VEDOLIZUMAB [Suspect]
     Active Substance: VEDOLIZUMAB
     Indication: Colitis ulcerative
  2. VEDOLIZUMAB [Suspect]
     Active Substance: VEDOLIZUMAB
     Indication: Colitis ulcerative
     Dosage: 108 MILLIGRAM, Q2WEEKS
     Dates: start: 20250503
  3. METHOTREXATE [Concomitant]
     Active Substance: METHOTREXATE
     Dosage: 7.5 MILLIGRAM, 1/WEEK
  4. APIXABAN [Concomitant]
     Active Substance: APIXABAN
  5. PANTOPRAZOLE [Concomitant]
     Active Substance: PANTOPRAZOLE
  6. AMLODIPINE [Concomitant]
     Active Substance: AMLODIPINE BESYLATE
  7. VALSARTAN [Concomitant]
     Active Substance: VALSARTAN
  8. TAMSULOSIN [Concomitant]
     Active Substance: TAMSULOSIN
  9. FOLIC ACID [Concomitant]
     Active Substance: FOLIC ACID
  10. METFORMIN [Concomitant]
     Active Substance: METFORMIN HYDROCHLORIDE
  11. IRON [Concomitant]
     Active Substance: IRON
  12. KERENDIA [Concomitant]
     Active Substance: FINERENONE
  13. MESALAMINE [Concomitant]
     Active Substance: MESALAMINE
     Dosage: 1.2 GRAM, QD

REACTIONS (4)
  - Colitis ulcerative [Recovered/Resolved]
  - Haematochezia [Recovered/Resolved]
  - Fall [Unknown]
  - Injury [Unknown]
